FAERS Safety Report 23775021 (Version 1)
Quarter: 2024Q2

REPORT INFORMATION
  Report Type: Spontaneous
  Country: US (occurrence: None)
  Receive Date: 20240423
  Receipt Date: 20240423
  Transmission Date: 20240716
  Serious: No
  Sender: FDA-Public Use
  Company Number: None

PATIENT
  Age: 70 Year
  Sex: Male
  Weight: 122.47 kg

DRUGS (2)
  1. RINVOQ [Suspect]
     Active Substance: UPADACITINIB
     Indication: Dermatitis atopic
     Dosage: FREQUENCY : DAILY;?
     Route: 048
     Dates: start: 202401
  2. RINVOQ [Suspect]
     Active Substance: UPADACITINIB
     Indication: Psoriasis

REACTIONS (2)
  - Pneumonia [None]
  - Therapy interrupted [None]
